FAERS Safety Report 4355472-8 (Version None)
Quarter: 2004Q2

REPORT INFORMATION
  Report Type: 
  Country: None (occurrence: None)
  Receive Date: 20040503
  Receipt Date: 20030702
  Transmission Date: 20050107
  Serious: Yes (Other)
  Sender: FDA-Public Use
  Company Number: US-SHR--03-010528

PATIENT
  Age: 16 Year
  Sex: Male
  Weight: 99.8 kg

DRUGS (1)
  1. MAGNEVIST [Suspect]
     Indication: ANGIOGRAM
     Dosage: 30 ML, 1 DOSE, INTRAVENOUS
     Route: 042
     Dates: start: 20030702, end: 20030702

REACTIONS (8)
  - DYSPNOEA [None]
  - FLUSHING [None]
  - NAUSEA [None]
  - PRURITUS [None]
  - PRURITUS GENERALISED [None]
  - SCLERAL DISORDER [None]
  - SNEEZING [None]
  - THROAT IRRITATION [None]
